FAERS Safety Report 7320836-7 (Version None)
Quarter: 2011Q1

REPORT INFORMATION
  Report Type: 
  Country: None (occurrence: None)
  Receive Date: 20110228
  Receipt Date: 20110217
  Transmission Date: 20110831
  Serious: Yes (Other)
  Sender: FDA-Public Use
  Company Number: US-ROCHE-760614

PATIENT
  Age: 9 Year
  Sex: Female
  Weight: 44.9 kg

DRUGS (2)
  1. TAMIFLU [Suspect]
     Indication: INFLUENZA
     Route: 048
     Dates: start: 20110217, end: 20110217
  2. OMNICEF [Concomitant]

REACTIONS (2)
  - THROAT TIGHTNESS [None]
  - SWELLING FACE [None]
